FAERS Safety Report 24557264 (Version 1)
Quarter: 2024Q4

REPORT INFORMATION
  Report Type: Spontaneous
  Country: HR (occurrence: HR)
  Receive Date: 20241028
  Receipt Date: 20241028
  Transmission Date: 20250114
  Serious: Yes (Other)
  Sender: VIIV
  Company Number: HR-ViiV Healthcare-HR2024EME131130

PATIENT

DRUGS (1)
  1. DOVATO [Suspect]
     Active Substance: DOLUTEGRAVIR SODIUM\LAMIVUDINE
     Indication: Product used for unknown indication
     Dosage: UNK

REACTIONS (7)
  - Squamous cell carcinoma [Unknown]
  - Haemoglobin decreased [Unknown]
  - Malaise [Unknown]
  - Weight decreased [Unknown]
  - C-reactive protein increased [Unknown]
  - Abdominal pain [Unknown]
  - Nausea [Unknown]
